FAERS Safety Report 8619057-7 (Version None)
Quarter: 2012Q3

REPORT INFORMATION
  Report Type: 
  Country: None (occurrence: None)
  Receive Date: 20120824
  Receipt Date: 20120821
  Transmission Date: 20120928
  Serious: Yes (Hospitalization)
  Sender: FDA-Public Use
  Company Number: PHHY2012NL072817

PATIENT
  Sex: Female
  Weight: 85 kg

DRUGS (24)
  1. SANDOSTATIN LAR [Suspect]
     Indication: GASTROINTESTINAL CARCINOMA
     Dosage: 30 MG ONCE EVERY 4 WEEKS
  2. TEMAZEPAM [Concomitant]
     Dosage: 1 DF, QD
     Route: 048
     Dates: start: 20120619, end: 20120718
  3. METOPROLOL TARTRATE [Concomitant]
     Route: 048
     Dates: start: 20110914, end: 20120311
  4. LACTULOSE [Concomitant]
     Dosage: 30 ML, ONCE DAILY
     Route: 048
     Dates: start: 20120106, end: 20120811
  5. AMITRIPTYLINE HYDROCHLORIDE [Concomitant]
     Dosage: 3 DF, BID
     Route: 048
     Dates: start: 20120221, end: 20120321
  6. GLICLAZIDE [Concomitant]
     Dosage: 1 DF, QD
     Route: 048
     Dates: start: 20120424, end: 20120722
  7. AMITRIPTYLINE HCL [Concomitant]
     Dosage: 3 DF, QD
     Route: 048
     Dates: start: 20120510, end: 20120807
  8. PREDNISONE TAB [Concomitant]
     Indication: HYPERSENSITIVITY
     Dosage: 30 MG, UNK
     Dates: start: 20120629, end: 20120706
  9. VASELINE [Concomitant]
     Route: 003
     Dates: start: 20120103, end: 20120630
  10. LORMETAZEPAM [Concomitant]
     Dosage: 1 DF, QD
     Route: 048
     Dates: start: 20120619, end: 20120718
  11. ALBUTEROL SULATE [Concomitant]
     Dosage: 4 DF, 4 TIMES DAILY 1 PUFF
  12. LANTUS [Concomitant]
     Dosage: UNK UKN, UNK
     Route: 058
  13. FAMOTIDINE [Concomitant]
     Dosage: 1 DF, QD
     Route: 048
     Dates: start: 20120424, end: 20120722
  14. VERAPAMIL HCL [Concomitant]
     Route: 048
  15. ACENOCOUMAROL [Concomitant]
     Route: 048
     Dates: start: 20120613, end: 20120619
  16. IRBESARTAN [Concomitant]
     Dosage: 1 DF, QD (150/12.5MG)
     Route: 048
  17. TIOTROPIUM [Concomitant]
     Dosage: 1 DF, QD
  18. ACETAMINOPHEN [Concomitant]
     Dosage: 4 DF, BID
     Route: 048
     Dates: start: 20110706, end: 20120101
  19. HYDROCORTISONE CREAM [Concomitant]
     Dosage: UNK UKN, UNK
     Route: 003
  20. HYDROXYZINE HYDROCHLORIDE [Concomitant]
     Indication: PHOTOSENSITIVITY REACTION
     Dosage: 3 DF, QD
     Dates: start: 20120607, end: 20120722
  21. CARBOMER [Concomitant]
     Dosage: UNK UKN, UNK
     Dates: start: 20111122, end: 20120120
  22. CLOPIDEGREL [Concomitant]
     Dosage: UNK UKN, UNK
     Route: 048
     Dates: start: 20110914, end: 20120311
  23. PREGABALIN [Concomitant]
     Dosage: UNK UKN, UNK
     Route: 048
     Dates: start: 20110706, end: 20120101
  24. BECLOMET [Concomitant]
     Dosage: 1 DF, BID

REACTIONS (2)
  - CHEST DISCOMFORT [None]
  - ABDOMINAL PAIN UPPER [None]
